FAERS Safety Report 9842106 (Version 1)
Quarter: 2014Q1

REPORT INFORMATION
  Report Type: Spontaneous
  Country: FR (occurrence: FR)
  Receive Date: 20140124
  Receipt Date: 20140124
  Transmission Date: 20141002
  Serious: Yes (Other)
  Sender: FDA-Public Use
  Company Number: FR-PFIZER INC-2014019936

PATIENT
  Age: 70 Year
  Sex: Male

DRUGS (3)
  1. TRIATEC [Suspect]
     Dosage: UNK
     Route: 065
     Dates: start: 201303, end: 20130405
  2. INEXIUM [Suspect]
     Dosage: UNK
     Route: 065
     Dates: start: 201303, end: 20130405
  3. NEBILOX [Concomitant]
     Dosage: UNK

REACTIONS (2)
  - Angioedema [Recovered/Resolved]
  - Condition aggravated [Recovered/Resolved]
